FAERS Safety Report 4486093-4 (Version None)
Quarter: 2004Q4

REPORT INFORMATION
  Report Type: 
  Country: None (occurrence: None)
  Receive Date: 20041026
  Receipt Date: 20041020
  Transmission Date: 20050328
  Serious: Yes (Hospitalization)
  Sender: FDA-Public Use
  Company Number: GB-MERCK-0410GBR00230

PATIENT
  Age: 11 Year
  Sex: Male
  Weight: 20 kg

DRUGS (8)
  1. DECADRON [Suspect]
     Indication: T-CELL LYMPHOMA
     Route: 048
     Dates: start: 20040830, end: 20041004
  2. VINCRISTINE SULFATE [Suspect]
     Indication: T-CELL LYMPHOMA
     Route: 042
     Dates: start: 20040907, end: 20040929
  3. VINCRISTINE SULFATE [Suspect]
     Route: 042
     Dates: start: 20040908, end: 20040929
  4. ASPARAGINASE (AS DRUG) [Concomitant]
     Indication: LYMPHOMA
     Route: 030
     Dates: start: 20040910, end: 20041004
  5. DAUNORUBICIN [Concomitant]
     Indication: LYMPHOMA
     Route: 042
     Dates: start: 20040908, end: 20040929
  6. PREDNISOLONE [Concomitant]
     Indication: LYMPHOMA
     Route: 048
     Dates: start: 20040830
  7. RANITIDINE [Concomitant]
     Indication: STEROID THERAPY
     Route: 048
     Dates: start: 20040830
  8. SULFAMETHOXAZOLE AND TRIMETHOPRIM [Concomitant]
     Route: 048

REACTIONS (3)
  - HYPONATRAEMIA [None]
  - INAPPROPRIATE ANTIDIURETIC HORMONE SECRETION [None]
  - NEUROPATHY PERIPHERAL [None]
